FAERS Safety Report 15936988 (Version 2)
Quarter: 2019Q1

REPORT INFORMATION
  Report Type: Spontaneous
  Country: US (occurrence: US)
  Receive Date: 20190208
  Receipt Date: 20190208
  Transmission Date: 20190417
  Serious: Yes (Hospitalization)
  Sender: FDA-Public Use
  Company Number: US-CELGENEUS-USA-20190200266

PATIENT
  Sex: Male
  Weight: 78.09 kg

DRUGS (1)
  1. REVLIMID [Suspect]
     Active Substance: LENALIDOMIDE
     Indication: PLASMA CELL MYELOMA
     Dosage: 25 MILLIGRAM
     Route: 048
     Dates: start: 20181220

REACTIONS (4)
  - Hypotension [Recovered/Resolved with Sequelae]
  - Fall [Recovered/Resolved with Sequelae]
  - Back injury [Recovered/Resolved with Sequelae]
  - Pyrexia [Recovered/Resolved with Sequelae]
